FAERS Safety Report 9420212 (Version 1)
Quarter: 2013Q3

REPORT INFORMATION
  Report Type: Spontaneous
  Country: US (occurrence: US)
  Receive Date: 20130725
  Receipt Date: 20130725
  Transmission Date: 20140515
  Serious: No
  Sender: FDA-Public Use
  Company Number: US-PFIZER INC-2013216569

PATIENT
  Age: 62 Year
  Sex: Male
  Weight: 86.2 kg

DRUGS (5)
  1. EFFEXOR XR [Suspect]
     Indication: DEPRESSION
     Dosage: UNK
     Route: 048
     Dates: start: 1993
  2. EFFEXOR XR [Suspect]
     Dosage: 300 MG, A DAY
     Route: 048
     Dates: end: 2012
  3. EFFEXOR XR [Suspect]
     Dosage: 150 MG, 1X/DAY
     Route: 048
  4. REMERON [Concomitant]
     Indication: SLEEP DISORDER
     Dosage: UNK
  5. VIAGRA [Concomitant]
     Dosage: UNK

REACTIONS (4)
  - Blood cholesterol increased [Unknown]
  - Hypertension [Unknown]
  - Loss of libido [Unknown]
  - Tinnitus [Not Recovered/Not Resolved]
